FAERS Safety Report 17099200 (Version 2)
Quarter: 2019Q4

REPORT INFORMATION
  Report Type: Report from Study
  Country: US (occurrence: US)
  Receive Date: 20191202
  Receipt Date: 20191212
  Transmission Date: 20200122
  Serious: No
  Sender: FDA-Public Use
  Company Number: US-BEH-2019109976

PATIENT
  Age: 15 Year
  Sex: Male
  Weight: 59 kg

DRUGS (2)
  1. HAEGARDA [Suspect]
     Active Substance: HUMAN C1-ESTERASE INHIBITOR
     Indication: PROPHYLAXIS
  2. HAEGARDA [Suspect]
     Active Substance: HUMAN C1-ESTERASE INHIBITOR
     Indication: HEREDITARY ANGIOEDEMA
     Dosage: 4000 (UNIT NOT REPORTED) THREE TO FOUR DAYS
     Route: 058
     Dates: start: 20180624

REACTIONS (2)
  - Intentional product misuse [Unknown]
  - No adverse event [Unknown]
